FAERS Safety Report 12220471 (Version 1)
Quarter: 2016Q1

REPORT INFORMATION
  Report Type: Spontaneous
  Country: VN (occurrence: VN)
  Receive Date: 20160330
  Receipt Date: 20160330
  Transmission Date: 20160526
  Serious: Yes (Hospitalization)
  Sender: FDA-Public Use
  Company Number: VN-BAYER-2015-482216

PATIENT
  Age: 17 Year
  Sex: Female

DRUGS (3)
  1. CIPROBAY [Suspect]
     Active Substance: CIPROFLOXACIN
     Indication: SOFT TISSUE INFECTION
  2. CIPROBAY [Suspect]
     Active Substance: CIPROFLOXACIN
     Indication: SNAKE BITE
  3. CIPROBAY [Suspect]
     Active Substance: CIPROFLOXACIN
     Indication: SKIN INFECTION
     Dosage: 400 MG, BID
     Route: 042
     Dates: start: 20151023, end: 20151025

REACTIONS (3)
  - Coagulopathy [Recovered/Resolved]
  - Aspartate aminotransferase increased [Recovered/Resolved]
  - Alanine aminotransferase increased [Recovered/Resolved]

NARRATIVE: CASE EVENT DATE: 20151025
